FAERS Safety Report 9240195 (Version 2)
Quarter: 2013Q2

REPORT INFORMATION
  Report Type: Spontaneous
  Country: US (occurrence: US)
  Receive Date: 20130418
  Receipt Date: 20130423
  Transmission Date: 20140414
  Serious: Yes (Death, Hospitalization)
  Sender: FDA-Public Use
  Company Number: US-B.I. PHARMACEUTICALS,INC./RIDGEFIELD-2013-BI-10043BP

PATIENT
  Sex: Female

DRUGS (9)
  1. PRADAXA [Suspect]
     Indication: ATRIAL FIBRILLATION
     Dosage: 300 MG
  2. METOPROLOL [Concomitant]
  3. NEXIUM [Concomitant]
  4. VALTREX [Concomitant]
  5. ALLOPURINOL [Concomitant]
  6. ZYRTEC [Concomitant]
  7. ENALAPRIL [Concomitant]
  8. FERROUS SULFATE [Concomitant]
  9. LASIX [Concomitant]

REACTIONS (1)
  - Pulmonary haemorrhage [Fatal]
